FAERS Safety Report 6370850-3 (Version None)
Quarter: 2009Q3

REPORT INFORMATION
  Report Type: 
  Country: None (occurrence: None)
  Receive Date: 20090923
  Receipt Date: 20070627
  Transmission Date: 20100115
  Serious: No
  Sender: FDA-Public Use
  Company Number: US-ASTRAZENECA-2006UW24693

PATIENT
  Age: 46 Year
  Sex: Male
  Weight: 147.4 kg

DRUGS (15)
  1. SEROQUEL [Suspect]
     Indication: SLEEP DISORDER
     Dosage: 900 TO 1200 MG
     Route: 048
     Dates: start: 20000101
  2. SEROQUEL [Suspect]
     Dosage: 25-900 MG
     Route: 048
     Dates: start: 20000627
  3. ABILIFY [Concomitant]
     Dates: start: 20020101
  4. GLYBURIDE [Concomitant]
  5. CAPTOPRIL [Concomitant]
  6. ATENOLOL [Concomitant]
  7. LIPITOR [Concomitant]
  8. WELLBUTRIN [Concomitant]
  9. PAXIL [Concomitant]
  10. GABITRIL [Concomitant]
  11. AMBIEN [Concomitant]
  12. ZYRTEC-D 12 HOUR [Concomitant]
  13. VISTARIL [Concomitant]
  14. TRAZODONE [Concomitant]
  15. LEVAQUIN [Concomitant]

REACTIONS (16)
  - AMNESIA [None]
  - BALANITIS [None]
  - BRONCHITIS [None]
  - CELLULITIS [None]
  - DERMATITIS CONTACT [None]
  - DIABETES MELLITUS [None]
  - EATING DISORDER [None]
  - HYPERTENSION [None]
  - HYPERTRIGLYCERIDAEMIA [None]
  - INJURY [None]
  - INSOMNIA [None]
  - MONARTHRITIS [None]
  - MUSCLE STRAIN [None]
  - MUSCULOSKELETAL PAIN [None]
  - ONYCHOMYCOSIS [None]
  - SINUSITIS [None]
